FAERS Safety Report 25252019 (Version 1)
Quarter: 2025Q2

REPORT INFORMATION
  Report Type: Spontaneous
  Country: US (occurrence: US)
  Receive Date: 20250429
  Receipt Date: 20250429
  Transmission Date: 20250716
  Serious: Yes (Other)
  Sender: UCB
  Company Number: US-UCBSA-2025024790

PATIENT
  Sex: Male

DRUGS (1)
  1. BRIVIACT [Suspect]
     Active Substance: BRIVARACETAM
     Indication: Epilepsy
     Dosage: 100 MILLIGRAM, 2X/DAY (BID)
     Dates: start: 202503

REACTIONS (3)
  - Seizure [Unknown]
  - Brain neoplasm [Unknown]
  - Chest pain [Unknown]

NARRATIVE: CASE EVENT DATE: 20250101
